FAERS Safety Report 19780109 (Version 4)
Quarter: 2022Q1

REPORT INFORMATION
  Report Type: Spontaneous
  Country: US (occurrence: US)
  Receive Date: 20210902
  Receipt Date: 20220314
  Transmission Date: 20220424
  Serious: No
  Sender: FDA-Public Use
  Company Number: US-BIOGEN-2021BI01045010

PATIENT
  Age: 65 Year
  Sex: Female

DRUGS (2)
  1. PLEGRIDY [Suspect]
     Active Substance: PEGINTERFERON BETA-1A
     Indication: Multiple sclerosis
     Route: 058
     Dates: start: 20150505, end: 202108
  2. PLEGRIDY [Suspect]
     Active Substance: PEGINTERFERON BETA-1A
     Route: 058
     Dates: start: 2018, end: 20220207

REACTIONS (9)
  - Multiple allergies [Unknown]
  - Gingival pain [Recovered/Resolved]
  - Toothache [Recovered/Resolved]
  - Mobility decreased [Recovered/Resolved]
  - Illness [Recovered/Resolved]
  - Myalgia [Recovered/Resolved]
  - Pain [Recovered/Resolved]
  - Headache [Recovered/Resolved]
  - Chills [Recovered/Resolved]

NARRATIVE: CASE EVENT DATE: 20191231
